FAERS Safety Report 16002591 (Version 1)
Quarter: 2019Q1

REPORT INFORMATION
  Report Type: Spontaneous
  Country: US (occurrence: US)
  Receive Date: 20190225
  Receipt Date: 20190225
  Transmission Date: 20190418
  Serious: No
  Sender: FDA-Public Use
  Company Number: US-SA-2019SA045085

PATIENT
  Age: 51 Year
  Sex: Male

DRUGS (10)
  1. DIOVAN [Concomitant]
     Active Substance: VALSARTAN
  2. SORIATANE [Concomitant]
     Active Substance: ACITRETIN
  3. METFORMIN [Concomitant]
     Active Substance: METFORMIN HYDROCHLORIDE
  4. CIALIS [Concomitant]
     Active Substance: TADALAFIL
  5. INVOKANA [Concomitant]
     Active Substance: CANAGLIFLOZIN
  6. GLIPIZIDE. [Concomitant]
     Active Substance: GLIPIZIDE
  7. TRADJENTA [Concomitant]
     Active Substance: LINAGLIPTIN
  8. DUPIXENT [Suspect]
     Active Substance: DUPILUMAB
     Indication: PSORIASIS
     Dosage: 300 MG, QOW
     Route: 058
     Dates: start: 20181211
  9. SIMVASTATIN. [Concomitant]
     Active Substance: SIMVASTATIN
  10. NEXIUM I.V. [Concomitant]
     Active Substance: ESOMEPRAZOLE SODIUM

REACTIONS (2)
  - Product use in unapproved indication [Unknown]
  - Drug ineffective [Unknown]

NARRATIVE: CASE EVENT DATE: 20181211
